FAERS Safety Report 5204715-7 (Version None)
Quarter: 2007Q1

REPORT INFORMATION
  Report Type: 
  Country: None (occurrence: None)
  Receive Date: 20070110
  Receipt Date: 20060623
  Transmission Date: 20070707
  Serious: No
  Sender: FDA-Public Use
  Company Number: US-BRISTOL-MYERS SQUIBB COMPANY-13422720

PATIENT
  Age: 46 Year
  Sex: Female
  Weight: 59 kg

DRUGS (8)
  1. ABILIFY [Suspect]
     Indication: BIPOLAR I DISORDER
     Route: 048
     Dates: start: 20060202, end: 20060509
  2. HYDROCODONE BITARTRATE [Concomitant]
  3. SKELAXIN [Concomitant]
  4. MORPHINE [Concomitant]
  5. REGLAN [Concomitant]
  6. XANAX [Concomitant]
  7. IMITREX [Concomitant]
  8. IBROPROFEN [Concomitant]

REACTIONS (3)
  - AGITATION [None]
  - AKATHISIA [None]
  - ANXIETY [None]
